FAERS Safety Report 10081947 (Version 2)
Quarter: 2014Q2

REPORT INFORMATION
  Report Type: Spontaneous
  Country: JP (occurrence: JP)
  Receive Date: 20140416
  Receipt Date: 20140606
  Transmission Date: 20141212
  Serious: Yes (Death)
  Sender: FDA-Public Use
  Company Number: JP-GLAXOSMITHKLINE-B0986038A

PATIENT
  Age: 79 Year
  Sex: Male

DRUGS (2)
  1. VOTRIENT 200MG [Suspect]
     Indication: MALIGNANT FIBROUS HISTIOCYTOMA
     Dosage: 800MG PER DAY
     Route: 048
     Dates: start: 20140218, end: 20140310
  2. NEXIUM [Concomitant]
     Dosage: 200MG PER DAY
     Route: 048
     Dates: start: 20140223, end: 20140307

REACTIONS (2)
  - Platelet count decreased [Recovered/Resolved]
  - Respiratory failure [Fatal]
